FAERS Safety Report 9458547 (Version 1)
Quarter: 2013Q3

REPORT INFORMATION
  Report Type: Spontaneous
  Country: US (occurrence: None)
  Receive Date: 20130812
  Receipt Date: 20130812
  Transmission Date: 20140515
  Serious: Yes (Other)
  Sender: FDA-Public Use
  Company Number: TIR-02497

PATIENT
  Sex: Female

DRUGS (1)
  1. TIROSINT [Suspect]

REACTIONS (1)
  - Thyrotoxic crisis [None]
